FAERS Safety Report 7533863-1 (Version None)
Quarter: 2011Q2

REPORT INFORMATION
  Report Type: 
  Country: None (occurrence: None)
  Receive Date: 20110608
  Receipt Date: 20060602
  Transmission Date: 20111010
  Serious: Yes (Other)
  Sender: FDA-Public Use
  Company Number: PHRM2006AU01072

PATIENT
  Sex: Female

DRUGS (4)
  1. CLOZAPINE [Suspect]
     Indication: SCHIZOPHRENIA
     Dosage: 75 MG, UNK
     Route: 048
     Dates: start: 20060306
  2. OLANZAPINE [Concomitant]
     Dosage: 10 MG, QD
  3. KELP [Concomitant]
     Dosage: 2000 MG, UNK
  4. CLOZAPINE [Suspect]
     Dosage: UP TO 100 MG/DAY
     Route: 048

REACTIONS (2)
  - VIITH NERVE PARALYSIS [None]
  - TOOTH ABSCESS [None]
